FAERS Safety Report 14269609 (Version 1)
Quarter: 2017Q4

REPORT INFORMATION
  Report Type: Spontaneous
  Country: US (occurrence: US)
  Receive Date: 20171211
  Receipt Date: 20171211
  Transmission Date: 20180321
  Serious: Yes (Life-Threatening, Disabling, Other)
  Sender: FDA-Public Use
  Company Number: US-OTSUKA-2015_013800

PATIENT
  Sex: Female

DRUGS (1)
  1. ABILIFY [Suspect]
     Active Substance: ARIPIPRAZOLE
     Indication: PRODUCT USED FOR UNKNOWN INDICATION
     Dosage: 10 MG, BID
     Route: 048
     Dates: start: 2002

REACTIONS (5)
  - Cardiac pacemaker insertion [Unknown]
  - Disability [Not Recovered/Not Resolved]
  - Off label use [Unknown]
  - Cardiac disorder [Unknown]
  - Breast cancer [Not Recovered/Not Resolved]
